FAERS Safety Report 17581733 (Version 2)
Quarter: 2020Q2

REPORT INFORMATION
  Report Type: Spontaneous
  Country: JP (occurrence: JP)
  Receive Date: 20200325
  Receipt Date: 20200527
  Transmission Date: 20200713
  Serious: Yes (Hospitalization)
  Sender: FDA-Public Use
  Company Number: JP-SHIRE-JP202011094

PATIENT

DRUGS (10)
  1. LEVOFLOXACIN HEMIHYDRATE [Concomitant]
     Active Substance: LEVOFLOXACIN
     Indication: PRODUCT USED FOR UNKNOWN INDICATION
  2. CEFTRIAXONE. [Concomitant]
     Active Substance: CEFTRIAXONE
     Indication: PRODUCT USED FOR UNKNOWN INDICATION
  3. MESALAZINE [Concomitant]
     Active Substance: MESALAMINE
     Indication: PRODUCT USED FOR UNKNOWN INDICATION
  4. LIALDA [Suspect]
     Active Substance: MESALAMINE
     Dosage: 4800 MILLIGRAM, 1X/DAY:QD
     Route: 048
     Dates: start: 20191210, end: 20191211
  5. ALBUMIN TANNATE [Concomitant]
     Active Substance: ALBUMIN BOVINE\TANNIC ACID
     Indication: PRODUCT USED FOR UNKNOWN INDICATION
  6. ADSORBIN [Concomitant]
     Active Substance: ALUMINUM SILICATE
     Indication: PRODUCT USED FOR UNKNOWN INDICATION
  7. MIYA-BM [Concomitant]
     Active Substance: CLOSTRIDIUM BUTYRICUM SPORES STRAIN M-55
     Indication: PRODUCT USED FOR UNKNOWN INDICATION
  8. LIALDA [Suspect]
     Active Substance: MESALAMINE
     Indication: COLITIS ULCERATIVE
     Dosage: 2400 MILLIGRAM, 1X/DAY:QD
     Route: 048
     Dates: start: 20190909, end: 20191209
  9. LIALDA [Suspect]
     Active Substance: MESALAMINE
     Dosage: 2400 MILLIGRAM, 1X/DAY:QD
     Route: 048
     Dates: start: 20191212, end: 20191217
  10. BIO-THREE [Concomitant]
     Active Substance: HERBALS
     Indication: PRODUCT USED FOR UNKNOWN INDICATION

REACTIONS (11)
  - Ocular hyperaemia [Unknown]
  - Headache [Recovering/Resolving]
  - Hyperamylasaemia [Recovered/Resolved]
  - Eye pain [Unknown]
  - Periorbital pain [Unknown]
  - Pleural disorder [Unknown]
  - Pulmonary imaging procedure abnormal [Recovering/Resolving]
  - Pyrexia [Unknown]
  - Abdominal pain [Unknown]
  - Rhinalgia [Unknown]
  - Sinusitis [Unknown]

NARRATIVE: CASE EVENT DATE: 20191202
